FAERS Safety Report 8257046-5 (Version None)
Quarter: 2012Q2

REPORT INFORMATION
  Report Type: 
  Country: None (occurrence: None)
  Receive Date: 20120403
  Receipt Date: 20120329
  Transmission Date: 20120825
  Serious: Yes (Life-Threatening)
  Sender: FDA-Public Use
  Company Number: JP-GLAXOSMITHKLINE-B0781202A

PATIENT
  Sex: Female
  Weight: 69 kg

DRUGS (4)
  1. HYCAMTIN [Suspect]
     Route: 042
     Dates: start: 20120220, end: 20120224
  2. DECADRON [Concomitant]
     Indication: OVARIAN CANCER RECURRENT
     Dosage: 9.9MG PER DAY
     Route: 042
     Dates: start: 20120123, end: 20120127
  3. KYTRIL [Concomitant]
     Indication: OVARIAN CANCER RECURRENT
     Dosage: 3MG PER DAY
     Route: 042
     Dates: start: 20120123, end: 20120127
  4. HYCAMTIN [Suspect]
     Indication: OVARIAN CANCER RECURRENT
     Dosage: 1.7MGM2 PER DAY
     Route: 042
     Dates: start: 20120123, end: 20120127

REACTIONS (1)
  - BRADYCARDIA [None]
